FAERS Safety Report 20213573 (Version 3)
Quarter: 2022Q1

REPORT INFORMATION
  Report Type: Spontaneous
  Country: US (occurrence: US)
  Receive Date: 20211221
  Receipt Date: 20220131
  Transmission Date: 20220423
  Serious: Yes (Other)
  Sender: FDA-Public Use
  Company Number: US-PHARMING-PHAUS2021000644

PATIENT

DRUGS (1)
  1. RUCONEST [Suspect]
     Active Substance: HUMAN C1-ESTERASE INHIBITOR
     Indication: Hereditary angioedema
     Dosage: 4200 IU, AS NEEDED
     Route: 042
     Dates: start: 20200929

REACTIONS (1)
  - COVID-19 [Recovering/Resolving]

NARRATIVE: CASE EVENT DATE: 20211202
